FAERS Safety Report 8106034-8 (Version None)
Quarter: 2012Q1

REPORT INFORMATION
  Report Type: 
  Country: None (occurrence: None)
  Receive Date: 20120202
  Receipt Date: 20120124
  Transmission Date: 20120608
  Serious: No
  Sender: FDA-Public Use
  Company Number: US-BIOGENIDEC-2012BI002975

PATIENT
  Age: 53 Year
  Sex: Male

DRUGS (3)
  1. AVONEX [Suspect]
     Indication: MULTIPLE SCLEROSIS
     Route: 030
     Dates: start: 20031019, end: 20060601
  2. BACLOFEN [Concomitant]
  3. AVONEX [Suspect]
     Route: 030
     Dates: start: 20101203

REACTIONS (4)
  - VITAMIN D DEFICIENCY [None]
  - ARTHRALGIA [None]
  - JOINT CREPITATION [None]
  - MUSCULOSKELETAL PAIN [None]
